FAERS Safety Report 17369274 (Version 1)
Quarter: 2020Q1

REPORT INFORMATION
  Report Type: Spontaneous
  Country: US (occurrence: US)
  Receive Date: 20200203
  Receipt Date: 20200203
  Transmission Date: 20200409
  Serious: Yes (Hospitalization)
  Sender: FDA-Public Use
  Company Number: None

PATIENT
  Age: 44 Year
  Sex: Female
  Weight: 50.4 kg

DRUGS (1)
  1. EQUATE NITETIME SEVERE [Suspect]
     Active Substance: ACETAMINOPHEN\DEXTROMETHORPHAN HYDROBROMIDE\DOXYLAMINE SUCCINATE\PHENYLEPHRINE HYDROCHLORIDE
     Indication: NASOPHARYNGITIS
     Dosage: ?          QUANTITY:2 CAPSULE(S);?
     Route: 048
     Dates: start: 20200203, end: 20200203

REACTIONS (7)
  - Abdominal distension [None]
  - Gait disturbance [None]
  - Dysstasia [None]
  - Pain [None]
  - Respiration abnormal [None]
  - Gastric dilatation [None]
  - Discomfort [None]

NARRATIVE: CASE EVENT DATE: 20200203
